FAERS Safety Report 4494591-2 (Version None)
Quarter: 2004Q4

REPORT INFORMATION
  Report Type: 
  Country: None (occurrence: None)
  Receive Date: 20041103
  Receipt Date: 20041018
  Transmission Date: 20050328
  Serious: Yes (Life-Threatening)
  Sender: FDA-Public Use
  Company Number: S04-UKI-07156-01

PATIENT
  Age: 55 Year
  Sex: Male

DRUGS (2)
  1. CITALOPRAM HYDROBROMIDE [Suspect]
     Dosage: 20 MG QD PO
     Route: 048
  2. OTHER (UNSPECIFIED) MEDICATION [Concomitant]

REACTIONS (3)
  - HALLUCINATIONS, MIXED [None]
  - MYOCLONUS [None]
  - SEROTONIN SYNDROME [None]
